FAERS Safety Report 5337227-0 (Version None)
Quarter: 2007Q2

REPORT INFORMATION
  Report Type: 
  Country: None (occurrence: None)
  Receive Date: 20070529
  Receipt Date: 20070524
  Transmission Date: 20071010
  Serious: Yes (Hospitalization, Disabling)
  Sender: FDA-Public Use
  Company Number: A0652893A

PATIENT
  Age: 49 Year
  Sex: Male

DRUGS (6)
  1. DEXEDRINE [Suspect]
     Indication: ATTENTION DEFICIT/HYPERACTIVITY DISORDER
     Dosage: 45MG TWICE PER DAY
     Route: 048
     Dates: start: 20010901
  2. ATENOLOL [Concomitant]
  3. FLUVOXAMINE MALEATE [Concomitant]
  4. HYDROCHLOROTHIAZIDE [Concomitant]
  5. OXYCODONE HCL [Concomitant]
  6. PREDNISOLONE EYE DROPS [Concomitant]

REACTIONS (8)
  - DIPLOPIA [None]
  - DIZZINESS [None]
  - HYPERTENSION [None]
  - PARALYSIS [None]
  - PHARMACEUTICAL PRODUCT COMPLAINT [None]
  - PRESYNCOPE [None]
  - VISION BLURRED [None]
  - VITH NERVE PARALYSIS [None]
